FAERS Safety Report 6186594-7 (Version None)
Quarter: 2009Q2

REPORT INFORMATION
  Report Type: 
  Country: None (occurrence: None)
  Receive Date: 20090507
  Receipt Date: 20090507
  Transmission Date: 20091009
  Serious: No
  Sender: FDA-Public Use
  Company Number: None

PATIENT
  Sex: Female

DRUGS (1)
  1. NICODERM CQ [Suspect]
     Indication: SMOKING CESSATION THERAPY
     Dosage: 21MG  1 PATCH/DAY TRANSDERMAL
     Route: 062
     Dates: start: 20081117, end: 20081212

REACTIONS (1)
  - GINGIVAL PAIN [None]
